FAERS Safety Report 18586940 (Version 1)
Quarter: 2020Q4

REPORT INFORMATION
  Report Type: Other
  Country: US (occurrence: US)
  Receive Date: 20201207
  Receipt Date: 20201207
  Transmission Date: 20210114
  Serious: Yes (Other)
  Sender: FDA-Public Use
  Company Number: US-ROCHE-2701634

PATIENT

DRUGS (2)
  1. ALTEPLASE. [Suspect]
     Active Substance: ALTEPLASE
     Indication: INFECTIOUS PLEURAL EFFUSION
     Dosage: DOSE WAS 0.4 MG/KG/DOSE (MAXIMUM 10 MG) AND DILUTED IN NORMAL SALINE TO 0.2 MG/ML
     Route: 034
  2. ALTEPLASE. [Suspect]
     Active Substance: ALTEPLASE
     Indication: EMPYEMA

REACTIONS (1)
  - Oxygen saturation abnormal [Recovered/Resolved]
